FAERS Safety Report 11522770 (Version 1)
Quarter: 2015Q3

REPORT INFORMATION
  Report Type: Spontaneous
  Country: US (occurrence: US)
  Receive Date: 20150918
  Receipt Date: 20150918
  Transmission Date: 20151125
  Serious: No
  Sender: FDA-Public Use
  Company Number: US-ROCHE-701009

PATIENT
  Age: 44 Year
  Sex: Female

DRUGS (6)
  1. COPEGUS [Suspect]
     Active Substance: RIBAVIRIN
     Indication: HEPATITIS C
     Dosage: IN DIVIDED DOSES,
     Route: 048
     Dates: start: 20100413, end: 20100708
  2. LISINOPRIL. [Concomitant]
     Active Substance: LISINOPRIL
     Route: 065
  3. METFORMIN [Concomitant]
     Active Substance: METFORMIN HYDROCHLORIDE
     Dosage: FREQUENCY DECREASED
     Route: 065
  4. METFORMIN [Concomitant]
     Active Substance: METFORMIN HYDROCHLORIDE
     Route: 065
  5. ZANTAC [Concomitant]
     Active Substance: RANITIDINE HYDROCHLORIDE
     Route: 065
  6. PEGASYS [Suspect]
     Active Substance: PEGINTERFERON ALFA-2A
     Indication: HEPATITIS C
     Dosage: FORM: PRE-FILLED SYRINGE,
     Route: 058
     Dates: start: 20100413, end: 20100708

REACTIONS (28)
  - Hypoaesthesia [Unknown]
  - Back pain [Recovered/Resolved]
  - Flatulence [Not Recovered/Not Resolved]
  - Fatigue [Unknown]
  - Insomnia [Recovered/Resolved]
  - Abdominal pain [Recovered/Resolved]
  - Cough [Recovering/Resolving]
  - Abdominal discomfort [Not Recovered/Not Resolved]
  - Malaise [Unknown]
  - Abdominal distension [Not Recovered/Not Resolved]
  - Muscle twitching [Unknown]
  - Mood swings [Recovered/Resolved]
  - Muscle spasms [Unknown]
  - Pharyngeal oedema [Recovering/Resolving]
  - Sensory disturbance [Recovered/Resolved]
  - Muscle disorder [Not Recovered/Not Resolved]
  - Pain [Unknown]
  - Dry mouth [Unknown]
  - Amnesia [Not Recovered/Not Resolved]
  - Headache [Not Recovered/Not Resolved]
  - Hot flush [Unknown]
  - Chills [Not Recovered/Not Resolved]
  - Odynophagia [Recovering/Resolving]
  - Nasal congestion [Recovering/Resolving]
  - Lacrimation increased [Not Recovered/Not Resolved]
  - Productive cough [Recovering/Resolving]
  - Skin odour abnormal [Not Recovered/Not Resolved]
  - Hyperhidrosis [Recovered/Resolved]

NARRATIVE: CASE EVENT DATE: 201004
